FAERS Safety Report 5034312-8 (Version None)
Quarter: 2006Q2

REPORT INFORMATION
  Report Type: 
  Country: None (occurrence: None)
  Receive Date: 20060626
  Receipt Date: 20050314
  Transmission Date: 20061013
  Serious: Yes (Hospitalization, Other)
  Sender: FDA-Public Use
  Company Number: PHNU2005DE01341

PATIENT
  Age: 61 Year
  Sex: Male
  Weight: 93 kg

DRUGS (8)
  1. SAMARIUM [153 SM] LEXIDRONAM PENTASODIUM [Concomitant]
     Route: 065
     Dates: start: 20030115
  2. RADIOTHERAPY [Concomitant]
     Dates: start: 20030115
  3. ZOLADEX [Concomitant]
     Dosage: EVERY 1 TO 3 MONTHS
     Route: 058
     Dates: start: 20020227
  4. ALNA [Concomitant]
     Dosage: 0.4 MG, QD
     Route: 048
     Dates: start: 20041102
  5. AVODART [Concomitant]
     Dosage: 0.5 MG, QD
     Route: 048
     Dates: start: 20041102
  6. BONDRONAT [Concomitant]
     Dates: start: 20041112, end: 20041228
  7. ZOMETA [Suspect]
     Indication: METASTASES TO BONE
     Dosage: 4 MG, QMO
     Dates: start: 20050503
  8. ZOMETA [Suspect]
     Dosage: 4 MG, QMO
     Dates: start: 20030103, end: 20040915

REACTIONS (9)
  - DENTAL OPERATION [None]
  - GENERAL ANAESTHESIA [None]
  - INFLAMMATION [None]
  - OSTEOMYELITIS [None]
  - OSTEONECROSIS [None]
  - SEQUESTRECTOMY [None]
  - STOMATITIS [None]
  - TOOTH EXTRACTION [None]
  - WOUND DEBRIDEMENT [None]
